FAERS Safety Report 8785376 (Version 3)
Quarter: 2012Q4

REPORT INFORMATION
  Report Type: Report from Study
  Country: JP (occurrence: JP)
  Receive Date: 20120914
  Receipt Date: 20121106
  Transmission Date: 20130627
  Serious: Yes (Other)
  Sender: FDA-Public Use
  Company Number: JP-VERTEX PHARMACEUTICAL INC.-2012-020879

PATIENT
  Age: 68 Year
  Sex: Female

DRUGS (11)
  1. VX-950 [Suspect]
     Indication: CHRONIC HEPATITIS C
     Dosage: 1500 mg, qd
     Route: 048
     Dates: start: 20120717, end: 20120918
  2. RIBAVIRIN [Suspect]
     Indication: CHRONIC HEPATITIS C
     Dosage: 400 mg, qd
     Route: 048
     Dates: start: 20120717, end: 20120918
  3. RIBAVIRIN [Suspect]
     Dosage: 200 mg, qd
     Route: 048
     Dates: start: 20120919, end: 20120925
  4. PEGINTERFERON ALFA-2B [Suspect]
     Indication: CHRONIC HEPATITIS C
     Dosage: 1.5 UNK, qw
     Route: 058
     Dates: start: 20120717, end: 20120731
  5. PEGINTERFERON ALFA-2B [Suspect]
     Dosage: 50 UNK, qw
     Route: 058
     Dates: start: 20120807, end: 20120925
  6. PREDONINE                          /00016201/ [Concomitant]
     Dosage: 30 mg, qd
     Route: 048
     Dates: start: 20120720, end: 20120911
  7. PREDONINE                          /00016201/ [Concomitant]
     Dosage: 20 mg, qd
     Route: 048
     Dates: start: 20120912, end: 20120918
  8. PREDONINE                          /00016201/ [Concomitant]
     Dosage: 10 mg, qd
     Route: 048
     Dates: start: 20120919, end: 20120925
  9. GASTER [Concomitant]
     Dosage: 40 mg, qd
     Route: 048
     Dates: start: 20120720, end: 20120925
  10. ZYLORIC [Concomitant]
     Dosage: 200 mg, qd
     Route: 048
     Dates: start: 20120724, end: 20120925
  11. NU-LOTAN [Concomitant]
     Dosage: 25 mg, qd
     Route: 048

REACTIONS (3)
  - Rash [Recovered/Resolved]
  - Anaemia [Recovered/Resolved]
  - Pruritus [None]
